FAERS Safety Report 4375926-8 (Version None)
Quarter: 2004Q2

REPORT INFORMATION
  Report Type: 
  Country: None (occurrence: None)
  Receive Date: 20040607
  Receipt Date: 20040525
  Transmission Date: 20050107
  Serious: Yes (Disabling, Other)
  Sender: FDA-Public Use
  Company Number: GBWYE767818MAY04

PATIENT
  Age: 66 Year
  Sex: Female

DRUGS (9)
  1. EFFEXOR XR [Suspect]
     Dosage: SEE IMAGE
     Route: 048
     Dates: start: 20021216, end: 20040201
  2. EFFEXOR XR [Suspect]
     Dosage: SEE IMAGE
     Route: 048
     Dates: end: 20040408
  3. EFFEXOR XR [Suspect]
     Dosage: SEE IMAGE
     Route: 048
     Dates: start: 20040201
  4. . [Concomitant]
  5. . [Concomitant]
  6. ATENOLOL [Concomitant]
  7. ATOVASTATIN (ATORVASTATIN) [Concomitant]
  8. ZOPICLONE (ZOPICLONE) [Concomitant]
  9. DIAZEPAM [Concomitant]

REACTIONS (5)
  - DERMATITIS EXFOLIATIVE [None]
  - INFLAMMATION [None]
  - PSORIASIS [None]
  - RASH ERYTHEMATOUS [None]
  - RASH MACULAR [None]
